FAERS Safety Report 6627995-X (Version None)
Quarter: 2010Q1

REPORT INFORMATION
  Report Type: 
  Country: None (occurrence: None)
  Receive Date: 20100311
  Receipt Date: 20090520
  Transmission Date: 20100710
  Serious: No
  Sender: FDA-Public Use
  Company Number: A0785278A

PATIENT
  Age: 41 Year
  Sex: Male

DRUGS (1)
  1. NICOTINE [Suspect]
     Dates: start: 20090519

REACTIONS (1)
  - ORAL DISCOMFORT [None]
